FAERS Safety Report 11167994 (Version 1)
Quarter: 2015Q2

REPORT INFORMATION
  Report Type: Spontaneous
  Country: US (occurrence: US)
  Receive Date: 20150605
  Receipt Date: 20150605
  Transmission Date: 20150821
  Serious: No
  Sender: FDA-Public Use
  Company Number: US-TEVA-567991ACC

PATIENT
  Sex: Female

DRUGS (1)
  1. PLAN B ONE-STEP [Suspect]
     Active Substance: LEVONORGESTREL
     Indication: POST COITAL CONTRACEPTION
     Route: 065
     Dates: start: 20150523, end: 20150523

REACTIONS (5)
  - Nausea [Unknown]
  - Adnexa uteri pain [Unknown]
  - Muscle spasms [Unknown]
  - Abdominal distension [Unknown]
  - Vaginal haemorrhage [Unknown]
